FAERS Safety Report 5083606-9 (Version None)
Quarter: 2006Q3

REPORT INFORMATION
  Report Type: 
  Country: None (occurrence: None)
  Receive Date: 20060818
  Receipt Date: 20060811
  Transmission Date: 20061208
  Serious: Yes (Disabling)
  Sender: FDA-Public Use
  Company Number: 458270

PATIENT
  Age: 70 Year
  Sex: Female

DRUGS (1)
  1. CARVEDILOL [Suspect]
     Dosage: 25MG PER DAY
     Route: 048
     Dates: start: 20060404, end: 20060511

REACTIONS (9)
  - ALANINE AMINOTRANSFERASE INCREASED [None]
  - ASPARTATE AMINOTRANSFERASE INCREASED [None]
  - BLOOD ALKALINE PHOSPHATASE INCREASED [None]
  - BLOOD CREATININE INCREASED [None]
  - BLOOD LACTATE DEHYDROGENASE INCREASED [None]
  - GAMMA-GLUTAMYLTRANSFERASE INCREASED [None]
  - HEPATOMEGALY [None]
  - LIVER TENDERNESS [None]
  - TRANSAMINASES INCREASED [None]
